FAERS Safety Report 19585561 (Version 2)
Quarter: 2021Q3

REPORT INFORMATION
  Report Type: Spontaneous
  Country: US (occurrence: US)
  Receive Date: 20210720
  Receipt Date: 20210813
  Transmission Date: 20211014
  Serious: Yes (Hospitalization, Other)
  Sender: FDA-Public Use
  Company Number: US-PFIZER INC-2021847103

PATIENT
  Age: 65 Year
  Sex: Female
  Weight: 59 kg

DRUGS (2)
  1. RAPAMUNE [Suspect]
     Active Substance: SIROLIMUS
     Dosage: 2 MG, 1X/DAY
     Route: 048
  2. RAPAMUNE [Suspect]
     Active Substance: SIROLIMUS
     Indication: DERMATOMYOSITIS
     Dosage: 1MG
     Route: 048

REACTIONS (18)
  - Peripheral swelling [Unknown]
  - Pain in extremity [Not Recovered/Not Resolved]
  - Drug intolerance [Unknown]
  - Joint swelling [Unknown]
  - Skin disorder [Unknown]
  - Off label use [Unknown]
  - Mood altered [Unknown]
  - Cardiac failure congestive [Unknown]
  - Arthralgia [Recovered/Resolved]
  - Fluid retention [Not Recovered/Not Resolved]
  - Condition aggravated [Unknown]
  - Walking disability [Unknown]
  - Product dose omission issue [Unknown]
  - Pain in extremity [Recovered/Resolved]
  - Dysstasia [Unknown]
  - Blood pressure difference of extremities [Unknown]
  - Crying [Unknown]
  - Tendon discomfort [Unknown]
